FAERS Safety Report 23320880 (Version 1)
Quarter: 2023Q4

REPORT INFORMATION
  Report Type: Spontaneous
  Country: CN (occurrence: CN)
  Receive Date: 20231220
  Receipt Date: 20231220
  Transmission Date: 20240110
  Serious: Yes (Hospitalization)
  Sender: FDA-Public Use
  Company Number: CN-DSJP-DSJ-2023-152116

PATIENT
  Age: 72 Year
  Sex: Male

DRUGS (2)
  1. EDOXABAN [Suspect]
     Active Substance: EDOXABAN
     Indication: Dilated cardiomyopathy
     Dosage: 1 DF, QD
     Route: 048
     Dates: start: 20231026, end: 20231211
  2. EDOXABAN [Suspect]
     Active Substance: EDOXABAN
     Indication: Arteriosclerosis coronary artery

REACTIONS (2)
  - Coagulation time prolonged [Recovering/Resolving]
  - International normalised ratio increased [Recovering/Resolving]

NARRATIVE: CASE EVENT DATE: 20231211
